FAERS Safety Report 8576419-4 (Version None)
Quarter: 2012Q3

REPORT INFORMATION
  Report Type: 
  Country: None (occurrence: None)
  Receive Date: 20120807
  Receipt Date: 20120112
  Transmission Date: 20120928
  Serious: Yes (Hospitalization, Other)
  Sender: FDA-Public Use
  Company Number: US-ROCHE-1094934

PATIENT
  Sex: Female

DRUGS (6)
  1. FLUTICASONE PROPIONATE [Concomitant]
     Dosage: 500/50
  2. SINGULAIR [Concomitant]
  3. XOLAIR [Suspect]
     Indication: ASTHMA
  4. PREDNISONE [Concomitant]
     Dosage: 6 TIMES
  5. SPIRIVA [Concomitant]
  6. ALBUTEROL [Concomitant]

REACTIONS (3)
  - INFECTION [None]
  - INSOMNIA [None]
  - RASH [None]
